FAERS Safety Report 10190653 (Version 1)
Quarter: 2014Q2

REPORT INFORMATION
  Report Type: Spontaneous
  Country: FR (occurrence: FR)
  Receive Date: 20140523
  Receipt Date: 20140523
  Transmission Date: 20141212
  Serious: Yes (Disabling, Other)
  Sender: FDA-Public Use
  Company Number: FR-ROCHE-1406037

PATIENT
  Age: 55 Year
  Sex: Female
  Weight: 78 kg

DRUGS (6)
  1. XOLAIR [Suspect]
     Indication: ASTHMA
     Route: 058
     Dates: start: 20120619
  2. XOLAIR [Suspect]
     Route: 058
     Dates: start: 201211, end: 201211
  3. FORADIL [Concomitant]
     Route: 065
     Dates: start: 2002
  4. FLIXOTIDE [Concomitant]
     Route: 065
     Dates: start: 2002
  5. SPIRIVA [Concomitant]
     Route: 065
     Dates: start: 2004
  6. AERIUS [Concomitant]
     Route: 065
     Dates: start: 2000

REACTIONS (1)
  - Rheumatoid arthritis [Not Recovered/Not Resolved]
